FAERS Safety Report 24572390 (Version 1)
Quarter: 2024Q4

REPORT INFORMATION
  Report Type: Spontaneous
  Country: DE (occurrence: DE)
  Receive Date: 20241101
  Receipt Date: 20241101
  Transmission Date: 20250114
  Serious: Yes (Other)
  Sender: MYLAN
  Company Number: DE-UCBSA-2024052037

PATIENT
  Age: 20 Year
  Sex: Female
  Weight: 34 kg

DRUGS (4)
  1. LEVETIRACETAM [Suspect]
     Active Substance: LEVETIRACETAM
     Indication: Prophylaxis
     Dosage: UNK
     Route: 048
     Dates: start: 2022
  2. LACOSAMIDE [Suspect]
     Active Substance: LACOSAMIDE
     Indication: Prophylaxis
     Dosage: 90 MILLIGRAM, QD, 45 MILLIGRAM, 2X/DAY (BID)
     Route: 048
     Dates: start: 2022
  3. LEVETIRACETAM [Suspect]
     Active Substance: LEVETIRACETAM
     Indication: Prophylaxis
     Dosage: 2000 MILLIGRAM, QD (1000 MILLIGRAM, 2X/DAY (BID) )
     Route: 042
     Dates: start: 2022
  4. TRANEXAMIC ACID [Concomitant]
     Active Substance: TRANEXAMIC ACID
     Indication: Tumour haemorrhage
     Dosage: UNK
     Route: 065

REACTIONS (3)
  - Pancytopenia [Unknown]
  - Headache [Unknown]
  - Off label use [Unknown]

NARRATIVE: CASE EVENT DATE: 20220101
